FAERS Safety Report 4344338-5 (Version None)
Quarter: 2004Q2

REPORT INFORMATION
  Report Type: 
  Country: None (occurrence: None)
  Receive Date: 20040420
  Receipt Date: 20040405
  Transmission Date: 20050107
  Serious: No
  Sender: FDA-Public Use
  Company Number: 04H-167-0257321-00

PATIENT
  Age: 67 Year
  Sex: Female
  Weight: 70 kg

DRUGS (18)
  1. ERYTHROCIN LACTOBIONATE [Suspect]
     Dosage: 250 MG, TDS, INTRAVENOUS
     Route: 042
     Dates: start: 20040311, end: 20040311
  2. SENNA [Concomitant]
  3. LACTULOSE [Concomitant]
  4. ALLOPURINOL TAB [Concomitant]
  5. PIP/TAZO [Concomitant]
  6. ACETAMINOPHEN [Concomitant]
  7. CYCLOPHOSPHAMIDE [Concomitant]
  8. GRANISETRON [Concomitant]
  9. DEXAMETHASONE [Concomitant]
  10. NOREPINEPHRINE [Concomitant]
  11. DOBUTAMINE [Concomitant]
  12. PROPOFOL [Concomitant]
  13. MEROPENEM [Concomitant]
  14. RANITIDINE [Concomitant]
  15. OMEPRAZOLE [Concomitant]
  16. AMPICILLIN [Concomitant]
  17. INSULIN HUMAN [Concomitant]
  18. POTASSIUM CHLORIDE [Concomitant]

REACTIONS (1)
  - BLOOD PRESSURE DECREASED [None]
